FAERS Safety Report 4647315-X (Version None)
Quarter: 2005Q2

REPORT INFORMATION
  Report Type: 
  Country: None (occurrence: None)
  Receive Date: 20050426
  Receipt Date: 20050407
  Transmission Date: 20051028
  Serious: Yes (Other)
  Sender: FDA-Public Use
  Company Number: 200510210BCA

PATIENT
  Age: 79 Year
  Sex: Female

DRUGS (7)
  1. AVELOX [Suspect]
     Dosage: 400 MG, TOTAL DAILY, ORAL
     Route: 048
  2. LAXATIVES [Concomitant]
  3. METOCLOPRAMIDE [Concomitant]
  4. MULTI-VITAMIN [Concomitant]
  5. OLANZAPINE [Concomitant]
  6. SEROQUEL [Concomitant]
  7. THIAMINE [Concomitant]

REACTIONS (6)
  - CONFUSIONAL STATE [None]
  - DEEP VEIN THROMBOSIS [None]
  - DELIRIUM [None]
  - HALLUCINATION, VISUAL [None]
  - JOINT EFFUSION [None]
  - OEDEMA PERIPHERAL [None]
